FAERS Safety Report 15354717 (Version 1)
Quarter: 2018Q3

REPORT INFORMATION
  Report Type: Spontaneous
  Country: PT (occurrence: PT)
  Receive Date: 20180906
  Receipt Date: 20180906
  Transmission Date: 20181010
  Serious: Yes (Disabling)
  Sender: FDA-Public Use
  Company Number: PT-SUN PHARMACEUTICAL INDUSTRIES LTD-2018R1-183580

PATIENT
  Sex: Female

DRUGS (1)
  1. ATORVASTATIN [Suspect]
     Active Substance: ATORVASTATIN
     Indication: HYPERCHOLESTEROLAEMIA
     Dosage: 20 MG, DAILY
     Route: 048
     Dates: end: 201807

REACTIONS (5)
  - Haematoma [Recovering/Resolving]
  - Amnesia [Recovering/Resolving]
  - Rash pruritic [Recovering/Resolving]
  - Muscle fatigue [Recovering/Resolving]
  - Chest pain [Recovering/Resolving]
